FAERS Safety Report 12193982 (Version 1)
Quarter: 2016Q1

REPORT INFORMATION
  Report Type: Spontaneous
  Country: US (occurrence: None)
  Receive Date: 20160318
  Receipt Date: 20160318
  Transmission Date: 20160526
  Serious: Yes (Life-Threatening, Hospitalization, Other)
  Sender: FDA-Public Use
  Company Number: None

PATIENT
  Age: 50 Year
  Sex: Female
  Weight: 57.61 kg

DRUGS (2)
  1. SYNTHROID [Suspect]
     Active Substance: LEVOTHYROXINE SODIUM
     Indication: HYPOTHYROIDISM
     Dosage: 1 PILL ONCE DAILY TAKEN BY MOUTH
     Route: 048
     Dates: start: 20150515, end: 20150605
  2. LEVOTHYROXINE. [Concomitant]
     Active Substance: LEVOTHYROXINE

REACTIONS (12)
  - Chest pain [None]
  - Heart rate increased [None]
  - Reaction to drug excipients [None]
  - Emotional distress [None]
  - Medical device removal [None]
  - Quality of life decreased [None]
  - Cardiac disorder [None]
  - Product substitution issue [None]
  - Blood thyroid stimulating hormone increased [None]
  - Multiple allergies [None]
  - Hypertension [None]
  - Abasia [None]

NARRATIVE: CASE EVENT DATE: 20150508
